FAERS Safety Report 7774448-1 (Version None)
Quarter: 2011Q3

REPORT INFORMATION
  Report Type: 
  Country: None (occurrence: None)
  Receive Date: 20110923
  Receipt Date: 20110913
  Transmission Date: 20111222
  Serious: Yes (Other)
  Sender: FDA-Public Use
  Company Number: US-ROCHE-647869

PATIENT
  Sex: Female
  Weight: 54.4 kg

DRUGS (5)
  1. ACCUTANE [Suspect]
     Indication: ACNE
     Dosage: DOSAGE REGIMEN: 40 MG ALTERNATING WITH 80 MG EVERY OTHER DAY
     Route: 048
     Dates: start: 20041020, end: 20050101
  2. ALLEGRA [Concomitant]
  3. RETIN-A [Concomitant]
  4. YASMIN [Concomitant]
  5. AUGMENTIN '125' [Concomitant]

REACTIONS (11)
  - BLOOD CHOLESTEROL INCREASED [None]
  - BLOOD TRIGLYCERIDES INCREASED [None]
  - COLITIS ULCERATIVE [None]
  - DRY SKIN [None]
  - INTESTINAL HAEMORRHAGE [None]
  - SKIN CHAPPED [None]
  - INFLAMMATORY BOWEL DISEASE [None]
  - CHEILITIS [None]
  - ECZEMA [None]
  - SACROILIITIS [None]
  - DEPRESSION [None]
